FAERS Safety Report 5611379-7 (Version None)
Quarter: 2008Q1

REPORT INFORMATION
  Report Type: 
  Country: None (occurrence: None)
  Receive Date: 20080201
  Receipt Date: 20080123
  Transmission Date: 20080703
  Serious: Yes (Other)
  Sender: FDA-Public Use
  Company Number: US-PFIZER INC-2008007631

PATIENT
  Sex: Female
  Weight: 73.9 kg

DRUGS (1)
  1. DEPO-PROVERA SUSPENSION/INJ [Suspect]
     Indication: DYSMENORRHOEA
     Route: 030
     Dates: start: 20070801, end: 20070801

REACTIONS (6)
  - AMENORRHOEA [None]
  - DEPRESSION [None]
  - FATIGUE [None]
  - METRORRHAGIA [None]
  - SUICIDAL IDEATION [None]
  - WEIGHT INCREASED [None]
